FAERS Safety Report 21056360 (Version 2)
Quarter: 2022Q3

REPORT INFORMATION
  Report Type: Spontaneous
  Country: US (occurrence: None)
  Receive Date: 20220708
  Receipt Date: 20220725
  Transmission Date: 20221027
  Serious: Yes (Death, Life-Threatening, Disabling, Other)
  Sender: FDA-Public Use
  Company Number: 2022A246801

PATIENT
  Age: 69 Year
  Sex: Male
  Weight: 90.7 kg

DRUGS (2)
  1. BRILINTA [Suspect]
     Active Substance: TICAGRELOR
     Indication: Stent placement
     Route: 048
     Dates: start: 20210619, end: 20210911
  2. BRILINTA [Suspect]
     Active Substance: TICAGRELOR
     Indication: Stent placement
     Route: 048
     Dates: end: 20211027

REACTIONS (9)
  - Cerebral haemorrhage [Fatal]
  - Cerebral mass effect [Unknown]
  - Unresponsive to stimuli [Unknown]
  - Headache [Not Recovered/Not Resolved]
  - Seizure [Unknown]
  - Blood magnesium decreased [Unknown]
  - Dyspnoea [Not Recovered/Not Resolved]
  - Speech disorder [Unknown]
  - Agitation [Unknown]

NARRATIVE: CASE EVENT DATE: 20110909
